FAERS Safety Report 7286219-3 (Version None)
Quarter: 2011Q1

REPORT INFORMATION
  Report Type: 
  Country: None (occurrence: None)
  Receive Date: 20110210
  Receipt Date: 20110201
  Transmission Date: 20110831
  Serious: Yes (Other)
  Sender: FDA-Public Use
  Company Number: PHHY2011NL07998

PATIENT
  Sex: Female

DRUGS (7)
  1. ZOMETA [Suspect]
     Dosage: 04/ 05 MG/ML PER 28 DAYS
     Dates: start: 20110201
  2. ZOMETA [Suspect]
     Indication: BREAST CANCER METASTATIC
     Dosage: 04/ 05 MG/ML PER 28 DAYS
     Dates: start: 20101013
  3. NAPROXEN [Concomitant]
     Dosage: 250 MG 2X 1
  4. OXYCONTIN [Concomitant]
     Dosage: 10MG 2X1
  5. ZOMETA [Suspect]
     Dosage: 04/ 05 MG/ML PER 28 DAYS
     Dates: start: 20110105
  6. PANTOPRAZOLE [Concomitant]
     Dosage: 20 MG 20 X 1
  7. PARACETAMOL [Concomitant]
     Dosage: 100 MG 4 X 1 PER DAY

REACTIONS (2)
  - LUNG DISORDER [None]
  - METASTASES TO BONE [None]
